FAERS Safety Report 22166870 (Version 1)
Quarter: 2023Q2

REPORT INFORMATION
  Report Type: Spontaneous
  Country: CA (occurrence: CA)
  Receive Date: 20230403
  Receipt Date: 20230403
  Transmission Date: 20230722
  Serious: Yes (Other)
  Sender: FDA-Public Use
  Company Number: CA-ORGANON-O2211CAN002361

PATIENT
  Age: 60 Year
  Sex: Female

DRUGS (48)
  1. MAXALT [Suspect]
     Active Substance: RIZATRIPTAN BENZOATE
     Indication: Product used for unknown indication
     Dosage: UNK
     Route: 065
  2. AMLODIPINE BESYLATE [Suspect]
     Active Substance: AMLODIPINE BESYLATE
     Indication: Migraine
     Dosage: UNK
     Route: 065
  3. ATENOLOL [Suspect]
     Active Substance: ATENOLOL
     Indication: Product used for unknown indication
     Dosage: UNK
     Route: 048
  4. CANDESARTAN [Suspect]
     Active Substance: CANDESARTAN
     Indication: Migraine
     Dosage: 16 MILLIGRAM, 1 EVERY 1 DAYS
     Route: 048
  5. CANDESARTAN [Suspect]
     Active Substance: CANDESARTAN
     Dosage: 16 MILLIGRAM
     Route: 048
  6. CANDESARTAN [Suspect]
     Active Substance: CANDESARTAN
     Dosage: UNK
     Route: 065
  7. CLONIDINE [Suspect]
     Active Substance: CLONIDINE
     Indication: Product used for unknown indication
     Dosage: UNK, DOSAGE FORM: NOT SPECIFIED
     Route: 065
  8. CORGARD [Suspect]
     Active Substance: NADOLOL
     Indication: Product used for unknown indication
     Dosage: UNK
     Route: 065
  9. DESYREL [Suspect]
     Active Substance: TRAZODONE HYDROCHLORIDE
     Indication: Product used for unknown indication
     Dosage: UNK
     Route: 065
  10. DIHYDROERGOTAMINE MESYLATE [Suspect]
     Active Substance: DIHYDROERGOTAMINE MESYLATE
     Indication: Migraine
     Dosage: UNK
     Route: 065
  11. AIMOVIG [Suspect]
     Active Substance: ERENUMAB-AOOE
     Indication: Migraine
     Dosage: FORMULATION REPORTED AS SOLUTION
     Route: 065
  12. AIMOVIG [Suspect]
     Active Substance: ERENUMAB-AOOE
     Dosage: FORMULATION REPORTED AS SOLUTION
     Route: 065
  13. ERENUMAB-AOOE [Suspect]
     Active Substance: ERENUMAB-AOOE
     Indication: Migraine
     Dosage: UNK
     Route: 065
  14. GABAPENTIN [Suspect]
     Active Substance: GABAPENTIN
     Indication: Migraine
     Dosage: UNK; DOSAGE FORM: NOT SPECIFIED
     Route: 065
  15. GABAPENTIN [Suspect]
     Active Substance: GABAPENTIN
     Indication: Product used for unknown indication
  16. LAMICTAL [Suspect]
     Active Substance: LAMOTRIGINE
     Indication: Product used for unknown indication
     Dosage: UNK
     Route: 065
  17. METOCLOPRAMIDE HYDROCHLORIDE [Suspect]
     Active Substance: METOCLOPRAMIDE HYDROCHLORIDE
     Indication: Product used for unknown indication
     Dosage: UNK
     Route: 065
  18. NAPROXEN [Suspect]
     Active Substance: NAPROXEN
     Indication: Product used for unknown indication
     Dosage: UNK; DOSAGE FORM : NOT SPECIFIED
     Route: 065
  19. NARATRIPTAN HYDROCHLORIDE [Suspect]
     Active Substance: NARATRIPTAN HYDROCHLORIDE
     Indication: Product used for unknown indication
     Dosage: UNK
     Route: 065
  20. NIFEDIPINE [Suspect]
     Active Substance: NIFEDIPINE
     Indication: Product used for unknown indication
     Dosage: UNK; DOSAGE FORM: NOT SPECIFIED
     Route: 065
  21. NORTRIPTYLINE HYDROCHLORIDE [Suspect]
     Active Substance: NORTRIPTYLINE HYDROCHLORIDE
     Indication: Product used for unknown indication
     Dosage: UNK
     Route: 065
  22. PIZOTYLINE MALEATE [Suspect]
     Active Substance: PIZOTYLINE MALEATE
     Indication: Product used for unknown indication
     Dosage: UNK
     Route: 065
  23. PREDNISONE [Suspect]
     Active Substance: PREDNISONE
     Indication: Product used for unknown indication
     Dosage: UNK; DOSAGE FORM: NOT SPECIFIED
     Route: 065
  24. PROCHLORPERAZINE [Suspect]
     Active Substance: PROCHLORPERAZINE
     Indication: Product used for unknown indication
     Dosage: UNK
     Route: 065
  25. PROCHLORPERAZINE [Suspect]
     Active Substance: PROCHLORPERAZINE
     Dosage: UNK
     Route: 065
  26. PROCHLORPERAZINE [Suspect]
     Active Substance: PROCHLORPERAZINE
     Indication: Product used for unknown indication
     Dosage: UNK
     Route: 065
  27. PROPRANOLOL HYDROCHLORIDE [Suspect]
     Active Substance: PROPRANOLOL HYDROCHLORIDE
     Indication: Migraine
     Dosage: 80 MILLIGRAM, 1 EVERY 1 DAYS
     Route: 065
  28. PROPRANOLOL HYDROCHLORIDE [Suspect]
     Active Substance: PROPRANOLOL HYDROCHLORIDE
     Indication: Product used for unknown indication
     Dosage: 40 MILLIGRAM, 2 EVERY 1 DAYS
     Route: 065
  29. PROPRANOLOL HYDROCHLORIDE [Suspect]
     Active Substance: PROPRANOLOL HYDROCHLORIDE
     Dosage: 40 MILLIGRAM, 1 EVERY 12 HOURS
     Route: 065
  30. PROPRANOLOL HYDROCHLORIDE [Suspect]
     Active Substance: PROPRANOLOL HYDROCHLORIDE
     Dosage: 40 MILLIGRAM, 1 EVERY 1 DAYS
     Route: 065
  31. PROPRANOLOL HYDROCHLORIDE [Suspect]
     Active Substance: PROPRANOLOL HYDROCHLORIDE
     Dosage: UNK
     Route: 065
  32. TOPAMAX [Suspect]
     Active Substance: TOPIRAMATE
     Indication: Product used for unknown indication
     Dosage: 75 MILLIGRAM
     Route: 065
  33. TOPAMAX [Suspect]
     Active Substance: TOPIRAMATE
     Dosage: 75 MILLIGRAM
     Route: 065
  34. DIVALPROEX SODIUM [Suspect]
     Active Substance: DIVALPROEX SODIUM
     Indication: Product used for unknown indication
     Dosage: UNK DOSAGE FORM: NOT SPECIFIED
     Route: 065
  35. VENLAFAXINE HYDROCHLORIDE [Suspect]
     Active Substance: VENLAFAXINE HYDROCHLORIDE
     Indication: Product used for unknown indication
     Dosage: UNK
     Route: 065
  36. VERAPAMIL HCL [Suspect]
     Active Substance: VERAPAMIL HYDROCHLORIDE
     Indication: Migraine
     Dosage: UNK; DOSAGE FORM: NOT SPECIFIED
     Route: 065
  37. ZOPICLONE [Suspect]
     Active Substance: ZOPICLONE
     Indication: Migraine
     Dosage: UNK
     Route: 065
  38. PROPRANOLOL [Suspect]
     Active Substance: PROPRANOLOL HYDROCHLORIDE
     Indication: Migraine
     Dosage: FORMULATION NOT SPECIFIED
     Route: 065
  39. ALLOPURINOL [Concomitant]
     Active Substance: ALLOPURINOL
     Indication: Product used for unknown indication
     Dosage: 20 MILLIGRAM
     Route: 065
  40. ALLOPURINOL [Concomitant]
     Active Substance: ALLOPURINOL
     Dosage: 20 MILLIGRAM
     Route: 065
  41. BOTULINUM TOXIN TYPE A [Concomitant]
     Active Substance: BOTULINUM TOXIN TYPE A
     Indication: Product used for unknown indication
     Dosage: 20 MILLIGRAM
     Route: 065
  42. BOTULINUM TOXIN TYPE A [Concomitant]
     Active Substance: BOTULINUM TOXIN TYPE A
     Dosage: UNK, DOSAGE FORM: NOT SPECIFIED
     Route: 065
  43. FROVATRIPTAN SUCCINATE [Concomitant]
     Active Substance: FROVATRIPTAN SUCCINATE
     Indication: Product used for unknown indication
     Dosage: UNK
     Route: 065
  44. GRAVOL [Concomitant]
     Active Substance: DIMENHYDRINATE
     Indication: Product used for unknown indication
     Dosage: UNK; DOSAGE FORM : NOT SPECIFIED
     Route: 065
  45. VALPROATE SODIUM [Concomitant]
     Active Substance: VALPROATE SODIUM
     Indication: Product used for unknown indication
     Dosage: UNK
     Route: 065
  46. TENORMIN [Concomitant]
     Active Substance: ATENOLOL
     Indication: Product used for unknown indication
     Dosage: UNK
     Route: 065
  47. TYLENOL [Concomitant]
     Active Substance: ACETAMINOPHEN
     Indication: Product used for unknown indication
     Dosage: UNK; DOSAGE FORM: NOT SPECIFIED
     Route: 065
  48. ALLOPURINOL [Concomitant]
     Active Substance: ALLOPURINOL
     Indication: Product used for unknown indication
     Dosage: 20 MILLIGRAM
     Route: 065

REACTIONS (18)
  - Abdominal pain [Unknown]
  - Anuria [Unknown]
  - Cough [Unknown]
  - Diarrhoea [Unknown]
  - Drug ineffective [Unknown]
  - Drug ineffective for unapproved indication [Unknown]
  - Dyspepsia [Unknown]
  - Dyspnoea [Unknown]
  - Extrapyramidal disorder [Unknown]
  - Migraine [Unknown]
  - Nausea [Unknown]
  - Neovascularisation [Unknown]
  - Off label use [Unknown]
  - Paradoxical drug reaction [Unknown]
  - Product use in unapproved indication [Unknown]
  - Product use issue [Unknown]
  - Treatment failure [Unknown]
  - Weight decreased [Unknown]
